FAERS Safety Report 21760747 (Version 1)
Quarter: 2022Q4

REPORT INFORMATION
  Report Type: Spontaneous
  Country: US (occurrence: None)
  Receive Date: 20221220
  Receipt Date: 20221220
  Transmission Date: 20230113
  Serious: No
  Sender: FDA-Public Use
  Company Number: None

PATIENT
  Age: 72 Year
  Sex: Male
  Weight: 84.37 kg

DRUGS (1)
  1. SKYRIZI [Suspect]
     Active Substance: RISANKIZUMAB-RZAA
     Dosage: OTHER STRENGTH : 360MG/2.4ML;?FREQUENCY : AS DIRECTED;?
     Route: 058
     Dates: start: 20221121

REACTIONS (1)
  - Arthralgia [None]

NARRATIVE: CASE EVENT DATE: 20221121
